FAERS Safety Report 24576295 (Version 1)
Quarter: 2024Q4

REPORT INFORMATION
  Report Type: Spontaneous
  Country: CN (occurrence: CN)
  Receive Date: 20241104
  Receipt Date: 20241104
  Transmission Date: 20250115
  Serious: Yes (Hospitalization)
  Sender: TAKEDA
  Company Number: CN-HUTCHMED LIMITED-HMP2024CN02428

PATIENT
  Age: 56 Year
  Sex: Male
  Weight: 70 kg

DRUGS (1)
  1. FRUQUINTINIB [Suspect]
     Active Substance: FRUQUINTINIB
     Indication: Rectal cancer
     Dosage: 1 MILLIGRAM, QD
     Route: 048
     Dates: start: 20240801, end: 20240815

REACTIONS (5)
  - Nausea [Unknown]
  - Haemoglobin decreased [Recovering/Resolving]
  - Vomiting [Unknown]
  - Decreased appetite [Unknown]
  - Underdose [Unknown]

NARRATIVE: CASE EVENT DATE: 20240801
